FAERS Safety Report 5065062-X (Version None)
Quarter: 2006Q3

REPORT INFORMATION
  Report Type: 
  Country: None (occurrence: None)
  Receive Date: 20060726
  Receipt Date: 20060720
  Transmission Date: 20061208
  Serious: Yes (Other)
  Sender: FDA-Public Use
  Company Number: 200612464GDS

PATIENT
  Age: 46 Year
  Sex: Female
  Weight: 69.5 kg

DRUGS (12)
  1. CIPROFLOXACIN [Suspect]
     Indication: FEBRILE NEUTROPENIA
     Dosage: SEE IMAGE
     Dates: start: 20051104, end: 20051110
  2. CIPROFLOXACIN [Suspect]
     Indication: FEBRILE NEUTROPENIA
     Dosage: SEE IMAGE
     Dates: start: 20051110, end: 20051116
  3. MERREM [Suspect]
     Indication: FEBRILE NEUTROPENIA
     Dosage: SEE IMAGE
     Route: 042
     Dates: end: 20051122
  4. MERREM [Suspect]
     Indication: FEBRILE NEUTROPENIA
     Dosage: SEE IMAGE
     Route: 042
     Dates: start: 20051117
  5. ALLOPURINOL [Concomitant]
  6. AMSA PD [Concomitant]
  7. CYTARABINE [Concomitant]
  8. GRANISETRON  HCL [Concomitant]
  9. ITRACONAZOLE [Concomitant]
  10. TOBRAMYCIN [Concomitant]
  11. TRANEXAMIC ACID [Concomitant]
  12. VANCOMYCIN [Concomitant]

REACTIONS (4)
  - FACE OEDEMA [None]
  - PRURITUS [None]
  - RASH MACULO-PAPULAR [None]
  - SKIN EXFOLIATION [None]
